FAERS Safety Report 9870539 (Version 2)
Quarter: 2015Q4

REPORT INFORMATION
  Report Type: Spontaneous
  Country: US (occurrence: US)
  Receive Date: 20140205
  Receipt Date: 20151007
  Transmission Date: 20160305
  Serious: Yes (Other)
  Sender: FDA-Public Use
  Company Number: US-SA-2014SA014164

PATIENT
  Age: 57 Year
  Sex: Male
  Weight: 72.57 kg

DRUGS (5)
  1. POTASSIUM [Concomitant]
     Active Substance: POTASSIUM
     Route: 065
  2. MELOXICAM. [Concomitant]
     Active Substance: MELOXICAM
     Route: 065
     Dates: start: 20130725
  3. SOMA [Concomitant]
     Active Substance: CARISOPRODOL
     Dates: start: 20130725
  4. MULTAQ [Suspect]
     Active Substance: DRONEDARONE
     Indication: PALPITATIONS
     Route: 048
  5. LORTAB [Concomitant]
     Active Substance: ACETAMINOPHEN\HYDROCODONE BITARTRATE
     Dosage: 7.5/500
     Route: 065
     Dates: start: 20130725

REACTIONS (3)
  - Anaemia [Unknown]
  - Back pain [Unknown]
  - Liver function test abnormal [Unknown]

NARRATIVE: CASE EVENT DATE: 2011
